FAERS Safety Report 19736671 (Version 1)
Quarter: 2021Q3

REPORT INFORMATION
  Report Type: Report from Study
  Country: IN (occurrence: IN)
  Receive Date: 20210823
  Receipt Date: 20210823
  Transmission Date: 20211014
  Serious: Yes (Hospitalization)
  Sender: FDA-Public Use
  Company Number: PHHY2016IN001682

PATIENT
  Age: 72 Year
  Sex: Male

DRUGS (2)
  1. TASIGNA [Suspect]
     Active Substance: NILOTINIB
     Dosage: 300 MG, BID
     Route: 048
     Dates: start: 20170211, end: 20210801
  2. TASIGNA [Suspect]
     Active Substance: NILOTINIB
     Indication: CHRONIC MYELOID LEUKAEMIA
     Dosage: 300 MG, BID
     Route: 048
     Dates: start: 20141105, end: 20151006

REACTIONS (4)
  - COVID-19 [Unknown]
  - Hyperglycaemia [Recovered/Resolved]
  - Eyelid disorder [Recovered/Resolved]
  - Salivary gland cyst [Unknown]

NARRATIVE: CASE EVENT DATE: 20151006
